FAERS Safety Report 9740657 (Version 1)
Quarter: 2013Q4

REPORT INFORMATION
  Report Type: Spontaneous
  Country: US (occurrence: US)
  Receive Date: 20131209
  Receipt Date: 20131209
  Transmission Date: 20140711
  Serious: No
  Sender: FDA-Public Use
  Company Number: US-BIOGENIDEC-2013BI093090

PATIENT
  Age: 39 Year
  Sex: Female
  Weight: 90 kg

DRUGS (6)
  1. TECFIDERA [Suspect]
     Indication: MULTIPLE SCLEROSIS
     Route: 048
  2. TECFIDERA [Suspect]
     Indication: MULTIPLE SCLEROSIS
     Route: 048
     Dates: start: 20130912
  3. METFORMIN [Concomitant]
     Route: 048
  4. JANUVIA [Concomitant]
     Route: 048
  5. VITAMIN D [Concomitant]
     Route: 048
  6. CITALOPRAM [Concomitant]
     Route: 048

REACTIONS (6)
  - Flushing [Unknown]
  - Diarrhoea [Unknown]
  - Abdominal pain [Unknown]
  - Vomiting [Unknown]
  - Erythema [Unknown]
  - Feeling hot [Unknown]
